FAERS Safety Report 15708921 (Version 1)
Quarter: 2018Q4

REPORT INFORMATION
  Report Type: Spontaneous
  Country: DE (occurrence: DE)
  Receive Date: 20181211
  Receipt Date: 20181211
  Transmission Date: 20190205
  Serious: Yes (Other)
  Sender: FDA-Public Use
  Company Number: PHHY2018DE178605

PATIENT
  Age: 29 Year
  Sex: Female

DRUGS (1)
  1. INTERFERON BETA-1B [Suspect]
     Active Substance: INTERFERON BETA-1B
     Indication: MULTIPLE SCLEROSIS
     Dosage: 250 UG, BID
     Route: 058
     Dates: start: 20180915

REACTIONS (5)
  - Visual impairment [Recovered/Resolved]
  - Influenza like illness [Recovering/Resolving]
  - Uveitis [Recovered/Resolved]
  - Injection site reaction [Recovering/Resolving]
  - Vitamin D deficiency [Unknown]
